FAERS Safety Report 10026871 (Version 2)
Quarter: 2014Q1

REPORT INFORMATION
  Report Type: Report from Study
  Country: US (occurrence: US)
  Receive Date: 20140321
  Receipt Date: 20140321
  Transmission Date: 20141002
  Serious: Yes (Other)
  Sender: FDA-Public Use
  Company Number: US-ASTRAZENECA-2013SE68780

PATIENT
  Age: 62 Year
  Sex: Male
  Weight: 79.4 kg

DRUGS (11)
  1. NEXIUM [Suspect]
     Indication: DYSPEPSIA
     Route: 048
     Dates: start: 2003, end: 201307
  2. NEXIUM [Suspect]
     Indication: DYSPEPSIA
     Route: 048
     Dates: start: 2004, end: 201301
  3. NEXIUM [Suspect]
     Indication: DYSPEPSIA
     Route: 048
     Dates: start: 201301, end: 201308
  4. OMEPRAZOLE [Suspect]
     Indication: DYSPEPSIA
     Route: 048
     Dates: start: 201301, end: 201309
  5. UNSPECIFIED PRODUCTS [Suspect]
     Route: 065
  6. LOVAZA [Concomitant]
     Indication: BLOOD CHOLESTEROL ABNORMAL
     Route: 048
  7. GENAMET5/500 [Concomitant]
     Indication: DIABETES MELLITUS
     Route: 048
  8. ALLOPURINOL [Concomitant]
     Indication: NEPHROLITHIASIS
     Route: 048
  9. GLIMEPIRIDE [Concomitant]
     Indication: DIABETES MELLITUS
     Route: 048
  10. VITAMINS OTC [Concomitant]
     Indication: VITAMIN SUPPLEMENTATION
     Route: 048
  11. PANTOPRAZOLE [Concomitant]
     Indication: DYSPEPSIA
     Route: 048

REACTIONS (12)
  - Nephrolithiasis [Not Recovered/Not Resolved]
  - Diabetes mellitus [Not Recovered/Not Resolved]
  - Weight increased [Not Recovered/Not Resolved]
  - Sleep disorder due to a general medical condition [Unknown]
  - Dyspepsia [Unknown]
  - Weight abnormal [Unknown]
  - Blood glucose abnormal [Unknown]
  - Hepatic enzyme increased [Unknown]
  - Headache [Unknown]
  - Drug ineffective [Unknown]
  - Intentional drug misuse [Unknown]
  - Drug dose omission [Not Recovered/Not Resolved]
